FAERS Safety Report 5405621-5 (Version None)
Quarter: 2007Q3

REPORT INFORMATION
  Report Type: 
  Country: None (occurrence: None)
  Receive Date: 20070806
  Receipt Date: 20070730
  Transmission Date: 20080115
  Serious: Yes (Other)
  Sender: FDA-Public Use
  Company Number: PHFR2007GB02000

PATIENT
  Age: 38 Year
  Sex: Male

DRUGS (6)
  1. NEORAL [Suspect]
     Indication: DERMATITIS ATOPIC
     Dosage: 175 MG, BID
     Route: 048
     Dates: start: 20061001, end: 20070613
  2. NEORAL [Suspect]
     Dosage: 50 MG, BID
  3. DERMOL [Concomitant]
     Indication: DERMATITIS ATOPIC
     Dosage: UNK, UNK
     Route: 061
  4. CETRABEN [Concomitant]
     Route: 061
  5. LORATADINE [Concomitant]
     Indication: DERMATITIS ATOPIC
     Route: 048
  6. DERMOVATE [Concomitant]
     Indication: DERMATITIS ATOPIC
     Route: 061

REACTIONS (3)
  - INFECTION [None]
  - NEUTROPENIA [None]
  - SKIN FISSURES [None]
